FAERS Safety Report 8328256-3 (Version None)
Quarter: 2012Q2

REPORT INFORMATION
  Report Type: 
  Country: None (occurrence: None)
  Receive Date: 20120502
  Receipt Date: 20120426
  Transmission Date: 20120825
  Serious: Yes (Death)
  Sender: FDA-Public Use
  Company Number: DE-ASTELLAS-2012EU003025

PATIENT
  Sex: Female
  Weight: 122 kg

DRUGS (3)
  1. MICAFUNGIN INJECTION [Suspect]
     Dosage: UNK
     Route: 065
  2. NORADRENALIN [Concomitant]
     Dosage: UNK
     Route: 065
  3. MIDAZOLAM [Concomitant]
     Dosage: UNK
     Route: 065

REACTIONS (1)
  - SEPTIC SHOCK [None]
